FAERS Safety Report 21056634 (Version 1)
Quarter: 2022Q3

REPORT INFORMATION
  Report Type: Spontaneous
  Country: US (occurrence: None)
  Receive Date: 20220707
  Receipt Date: 20220707
  Transmission Date: 20221026
  Serious: Yes (Life-Threatening)
  Sender: FDA-Public Use
  Company Number: None

PATIENT
  Age: 58 Year
  Sex: Female
  Weight: 58 kg

DRUGS (6)
  1. BEBTELOVIMAB [Suspect]
     Active Substance: BEBTELOVIMAB
     Indication: COVID-19
     Dosage: FREQUENCY : ONCE;?
     Route: 042
     Dates: start: 20220706, end: 20220706
  2. dicyclomine 10 mg tab [Concomitant]
  3. lidocaine 5% topical patch [Concomitant]
  4. azithromycin (z-pak) [Concomitant]
  5. ondansetron 4 mg ODT [Concomitant]
  6. omeprazole 20 mg cap [Concomitant]

REACTIONS (2)
  - Anaphylactic reaction [None]
  - Respiratory distress [None]

NARRATIVE: CASE EVENT DATE: 20220706
